FAERS Safety Report 11283249 (Version 5)
Quarter: 2015Q4

REPORT INFORMATION
  Report Type: Report from Study
  Country: BE (occurrence: BE)
  Receive Date: 20150720
  Receipt Date: 20151028
  Transmission Date: 20160304
  Serious: Yes (Hospitalization)
  Sender: FDA-Public Use
  Company Number: BE-ABBVIE-15P-013-1347866-00

PATIENT
  Sex: Female

DRUGS (11)
  1. LEVODOPA/CARBIDOPA [Suspect]
     Active Substance: CARBIDOPA\LEVODOPA
     Dosage: DOSAGE CONTINUOUSLY MONITORED AND ADJUSTED
     Route: 050
     Dates: start: 20110929, end: 20141007
  2. PROLOPA [Concomitant]
     Active Substance: BENSERAZIDE\LEVODOPA
     Indication: PRODUCT USED FOR UNKNOWN INDICATION
     Dosage: 200MG/50MGUNIT DOSE:0.5 UNIT. 5 PER DAY AS EMERGENCY MEDICATION
  3. LEVODOPA/CARBIDOPA [Suspect]
     Active Substance: CARBIDOPA\LEVODOPA
     Dosage: AM DOSE= 7ML, CONTIN DOSE= 2.7ML/H DURING 16HRS, EXTRA DOSE=1.8 ML
     Route: 050
     Dates: start: 20150313, end: 20150705
  4. LEVODOPA/CARBIDOPA [Suspect]
     Active Substance: CARBIDOPA\LEVODOPA
     Dosage: AM=7ML;CD=2.6ML/HR DURING 16HRS; ED=1.8ML
     Route: 050
     Dates: start: 20150705, end: 20150731
  5. LEVODOPA/CARBIDOPA [Suspect]
     Active Substance: CARBIDOPA\LEVODOPA
     Dosage: AM DOSE=7ML, CD=2.8ML/H FOR 16HRS AND ED=1.8ML
     Route: 050
     Dates: start: 20150209, end: 20150313
  6. LEVODOPA/CARBIDOPA [Suspect]
     Active Substance: CARBIDOPA\LEVODOPA
     Indication: PARKINSON^S DISEASE
     Dosage: AM DOSE=8ML, CD=1.3ML/H FOR 16HRS AND ED=1ML
     Route: 050
     Dates: start: 20110912, end: 20110929
  7. LEVODOPA/CARBIDOPA [Suspect]
     Active Substance: CARBIDOPA\LEVODOPA
     Dosage: AM=7ML; CD=2.7ML/HR DURING 16HRS; ED=2ML
     Route: 050
     Dates: start: 20150731, end: 20150826
  8. LEVODOPA/CARBIDOPA [Suspect]
     Active Substance: CARBIDOPA\LEVODOPA
     Dosage: AM=7ML; CD=2.6ML/HR DURING 16HRS; ED=2ML
     Route: 050
     Dates: start: 20150826, end: 20150914
  9. PRAMIPEXOL [Concomitant]
     Active Substance: PRAMIPEXOLE
     Indication: PRODUCT USED FOR UNKNOWN INDICATION
     Dates: end: 201507
  10. LEVODOPA/CARBIDOPA [Suspect]
     Active Substance: CARBIDOPA\LEVODOPA
     Dosage: AM=7ML; CD=2.7ML/HR DURING 16HRS; ED=2ML
     Route: 050
     Dates: start: 20150914
  11. LEVODOPA/CARBIDOPA [Suspect]
     Active Substance: CARBIDOPA\LEVODOPA
     Dosage: AM DOSE=7ML, CD=2.9ML/H FOR 16HRS AND ED=1.8ML
     Route: 050
     Dates: start: 20141007, end: 20150209

REACTIONS (12)
  - Freezing phenomenon [Recovered/Resolved]
  - Joint dislocation [Unknown]
  - Drug ineffective [Unknown]
  - Dyskinesia [Not Recovered/Not Resolved]
  - Fall [Unknown]
  - Femur fracture [Unknown]
  - Pain in extremity [Unknown]
  - Balance disorder [Unknown]
  - Freezing phenomenon [Unknown]
  - Anxiety [Recovering/Resolving]
  - Incorrect dose administered [Unknown]
  - Nervousness [Recovering/Resolving]
